FAERS Safety Report 11050532 (Version 1)
Quarter: 2015Q2

REPORT INFORMATION
  Report Type: Report from Study
  Country: IN (occurrence: IN)
  Receive Date: 20150421
  Receipt Date: 20150421
  Transmission Date: 20150821
  Serious: Yes (Hospitalization)
  Sender: FDA-Public Use
  Company Number: IN-ROCHE-1565027

PATIENT
  Age: 35 Year
  Sex: Female

DRUGS (6)
  1. WYSOLONE [Concomitant]
     Active Substance: PREDNISOLONE
     Indication: RENAL TRANSPLANT
     Dosage: THERAPY ONGOING
     Route: 048
     Dates: start: 20150123
  2. VALGANCICLOVIR [Concomitant]
     Active Substance: VALGANCICLOVIR
     Dosage: 1 TABLET; THERAPY ONGOING
     Route: 048
     Dates: start: 20150123
  3. ARKAMINE [Concomitant]
     Dosage: 1MG;TD; THERAPY ONGOING
     Route: 048
     Dates: start: 20150123
  4. POLYBION [Concomitant]
     Route: 065
     Dates: start: 20150123
  5. RIBAVIRIN. [Suspect]
     Active Substance: RIBAVIRIN
     Indication: HEPATITIS C
     Route: 048
     Dates: start: 20150402
  6. CELLCEPT [Suspect]
     Active Substance: MYCOPHENOLATE MOFETIL\MYCOPHENOLATE MOFETIL HYDROCHLORIDE
     Indication: RENAL TRANSPLANT
     Dosage: THERAPY ONGOING;
     Route: 048
     Dates: start: 20150123

REACTIONS (1)
  - Full blood count decreased [Not Recovered/Not Resolved]

NARRATIVE: CASE EVENT DATE: 20150414
